FAERS Safety Report 4365617-1 (Version None)
Quarter: 2004Q2

REPORT INFORMATION
  Report Type: 
  Country: None (occurrence: None)
  Receive Date: 20040520
  Receipt Date: 20040507
  Transmission Date: 20050107
  Serious: Yes (Hospitalization)
  Sender: FDA-Public Use
  Company Number: US-JNJFOC-20040502193

PATIENT
  Age: 44 Year
  Sex: Male

DRUGS (3)
  1. DURAGESIC [Suspect]
     Indication: PAIN
     Dosage: 50 UG/HR, 1 IN 72 HOUR, TRANSDERMAL;  75 UG/HR, 1 IN 72 HOUR, TRANSDERMAL
     Route: 062
     Dates: start: 20011101, end: 20020916
  2. DURAGESIC [Suspect]
     Indication: PAIN
     Dosage: 50 UG/HR, 1 IN 72 HOUR, TRANSDERMAL;  75 UG/HR, 1 IN 72 HOUR, TRANSDERMAL
     Route: 062
     Dates: start: 20020916, end: 20021002
  3. EFFEXOR [Suspect]
     Indication: DEPRESSION
     Dates: start: 20020916, end: 20020929

REACTIONS (1)
  - CONVULSION [None]
